FAERS Safety Report 5410527-1 (Version None)
Quarter: 2007Q3

REPORT INFORMATION
  Report Type: 
  Country: None (occurrence: None)
  Receive Date: 20070810
  Receipt Date: 20070214
  Transmission Date: 20080115
  Serious: No
  Sender: FDA-Public Use
  Company Number: A0639912A

PATIENT
  Sex: Female

DRUGS (1)
  1. PAXIL [Suspect]
     Dates: start: 20020101

REACTIONS (1)
  - PERSONALITY CHANGE [None]
